FAERS Safety Report 17237794 (Version 1)
Quarter: 2020Q1

REPORT INFORMATION
  Report Type: Spontaneous
  Country: US (occurrence: US)
  Receive Date: 20200106
  Receipt Date: 20200106
  Transmission Date: 20200409
  Serious: Yes (Hospitalization)
  Sender: FDA-Public Use
  Company Number: US-SA-2020SA001921

PATIENT
  Age: 72 Year
  Sex: Female

DRUGS (2)
  1. ENOXAPARIN SODIUM. [Suspect]
     Active Substance: ENOXAPARIN SODIUM
     Indication: DEEP VEIN THROMBOSIS
     Dosage: UNK
  2. BEVACIZUMAB. [Concomitant]
     Active Substance: BEVACIZUMAB
     Indication: OVARIAN CANCER METASTATIC
     Dosage: UNK

REACTIONS (2)
  - Dyspnoea [Unknown]
  - Vascular pseudoaneurysm [Recovering/Resolving]
